FAERS Safety Report 17826116 (Version 1)
Quarter: 2020Q2

REPORT INFORMATION
  Report Type: Report from Study
  Country: IT (occurrence: IT)
  Receive Date: 20200526
  Receipt Date: 20200526
  Transmission Date: 20200714
  Serious: Yes (Other)
  Sender: FDA-Public Use
  Company Number: IT-MYLANLABS-2020M1050928

PATIENT
  Age: 45 Year
  Sex: Female

DRUGS (1)
  1. EXEMESTANE MYLAN 25 MG, COMPRIM? PELLICUL? [Suspect]
     Active Substance: EXEMESTANE
     Indication: BREAST NEOPLASM
     Dosage: 25 MILLIGRAM, QD
     Route: 048
     Dates: start: 20190604, end: 20200420

REACTIONS (2)
  - Fluid retention [Recovering/Resolving]
  - Arthralgia [Recovering/Resolving]

NARRATIVE: CASE EVENT DATE: 20200401
